FAERS Safety Report 16644454 (Version 1)
Quarter: 2019Q3

REPORT INFORMATION
  Report Type: Spontaneous
  Country: US (occurrence: US)
  Receive Date: 20190729
  Receipt Date: 20190729
  Transmission Date: 20191004
  Serious: No
  Sender: FDA-Public Use
  Company Number: US-JNJFOC-20190738174

PATIENT
  Sex: Male

DRUGS (4)
  1. XARELTO [Suspect]
     Active Substance: RIVAROXABAN
     Indication: CEREBROVASCULAR ACCIDENT PROPHYLAXIS
     Route: 048
  2. XARELTO [Suspect]
     Active Substance: RIVAROXABAN
     Indication: THROMBOSIS
  3. PRIMIDONE. [Suspect]
     Active Substance: PRIMIDONE
     Indication: TREMOR
     Route: 065
  4. BABY ASPIRIN [Concomitant]
     Active Substance: ASPIRIN

REACTIONS (2)
  - Contraindicated product administered [Unknown]
  - Off label use [Unknown]
